FAERS Safety Report 8246214-4 (Version None)
Quarter: 2012Q1

REPORT INFORMATION
  Report Type: 
  Country: None (occurrence: None)
  Receive Date: 20120328
  Receipt Date: 20120328
  Transmission Date: 20120608
  Serious: Yes (Other)
  Sender: FDA-Public Use
  Company Number: None

PATIENT
  Age: 74 Year
  Sex: Female
  Weight: 74.8435 kg

DRUGS (2)
  1. MOBIC [Suspect]
     Indication: PAIN
     Dosage: 1 DAILY DAILY ORAL  FALL 2010 ON -
     Route: 048
     Dates: start: 20100101
  2. MOBIC [Suspect]
     Indication: ARTHRITIS
     Dosage: 1 DAILY DAILY ORAL  FALL 2010 ON -
     Route: 048
     Dates: start: 20100101

REACTIONS (2)
  - PRURITUS [None]
  - SKIN LESION [None]
